FAERS Safety Report 6556526-8 (Version None)
Quarter: 2010Q1

REPORT INFORMATION
  Report Type: 
  Country: None (occurrence: None)
  Receive Date: 20100128
  Receipt Date: 20100121
  Transmission Date: 20100710
  Serious: Yes (Other)
  Sender: FDA-Public Use
  Company Number: US-ABBOTT-10P-163-0622085-00

PATIENT
  Sex: Male
  Weight: 83.082 kg

DRUGS (1)
  1. TRILIPIX [Suspect]
     Indication: DRUG USE FOR UNKNOWN INDICATION
     Dates: start: 20091111, end: 20100115

REACTIONS (2)
  - LIP SWELLING [None]
  - RASH GENERALISED [None]
